FAERS Safety Report 21871166 (Version 2)
Quarter: 2023Q1

REPORT INFORMATION
  Report Type: Spontaneous
  Country: US (occurrence: US)
  Receive Date: 20230117
  Receipt Date: 20230118
  Transmission Date: 20230417
  Serious: Yes (Death, Life-Threatening, Other)
  Sender: FDA-Public Use
  Company Number: US-PFIZER INC-PV202300008925

PATIENT
  Age: 37 Year
  Sex: Female

DRUGS (4)
  1. METHOTREXATE SODIUM [Interacting]
     Active Substance: METHOTREXATE SODIUM
     Indication: Metastases to meninges
     Dosage: 12 MG
     Route: 037
  2. PROPOFOL [Interacting]
     Active Substance: PROPOFOL
     Indication: Anaesthesia
  3. NITROUS OXIDE [Interacting]
     Active Substance: NITROUS OXIDE
     Indication: Anaesthesia
  4. DESFLURANE [Concomitant]
     Active Substance: DESFLURANE
     Indication: Anaesthesia

REACTIONS (5)
  - Brain oedema [Fatal]
  - Drug interaction [Fatal]
  - Toxicity to various agents [Fatal]
  - Brain death [Fatal]
  - Off label use [Unknown]
